FAERS Safety Report 6300271-0 (Version None)
Quarter: 2009Q3

REPORT INFORMATION
  Report Type: 
  Country: None (occurrence: None)
  Receive Date: 20090803
  Receipt Date: 20090722
  Transmission Date: 20100115
  Serious: Yes (Hospitalization)
  Sender: FDA-Public Use
  Company Number: 1000007852

PATIENT
  Sex: Female
  Weight: 3 kg

DRUGS (1)
  1. CITALOPRAM HYDROBROMIDE [Suspect]
     Dosage: 40 MG (40 MG, 1 IN 1 D), TRANSPLACENTAL
     Route: 064
     Dates: end: 20080928

REACTIONS (9)
  - AMNIOCENTESIS ABNORMAL [None]
  - APGAR SCORE LOW [None]
  - HEART RATE DECREASED [None]
  - HEART SOUNDS ABNORMAL [None]
  - MATERNAL DRUGS AFFECTING FOETUS [None]
  - NEONATAL ASPHYXIA [None]
  - NEONATAL RESPIRATORY DISTRESS SYNDROME [None]
  - SCREAMING [None]
  - VACUUM EXTRACTOR DELIVERY [None]
